FAERS Safety Report 21928241 (Version 1)
Quarter: 2023Q1

REPORT INFORMATION
  Report Type: Spontaneous
  Country: US (occurrence: US)
  Receive Date: 20230130
  Receipt Date: 20230130
  Transmission Date: 20230418
  Serious: No
  Sender: FDA-Public Use
  Company Number: US-Blueprint Medicines Corporation-759

PATIENT
  Age: 74 Year
  Sex: Female

DRUGS (1)
  1. AYVAKIT [Suspect]
     Active Substance: AVAPRITINIB
     Indication: Systemic mastocytosis
     Route: 065
     Dates: start: 20211215

REACTIONS (3)
  - Platelet count decreased [Unknown]
  - Diarrhoea [Unknown]
  - Arthropathy [Unknown]

NARRATIVE: CASE EVENT DATE: 20230123
